FAERS Safety Report 21838918 (Version 1)
Quarter: 2023Q1

REPORT INFORMATION
  Report Type: Spontaneous
  Country: US (occurrence: None)
  Receive Date: 20230107
  Receipt Date: 20230107
  Transmission Date: 20230418
  Serious: Yes (Hospitalization)
  Sender: FDA-Public Use
  Company Number: None

PATIENT
  Age: 87 Year
  Sex: Male
  Weight: 59.42 kg

DRUGS (1)
  1. CEMIPLIMAB-RWLC [Suspect]
     Active Substance: CEMIPLIMAB-RWLC
     Indication: Skin cancer
     Dosage: 350 MG ONCE IV
     Route: 042
     Dates: start: 20220726

REACTIONS (10)
  - Malaise [None]
  - Impaired self-care [None]
  - Peroneal nerve palsy [None]
  - Hypoaesthesia [None]
  - Hypoaesthesia [None]
  - Hypoaesthesia [None]
  - Neuropathy peripheral [None]
  - COVID-19 [None]
  - Fatigue [None]
  - Asthenia [None]

NARRATIVE: CASE EVENT DATE: 20220726
